FAERS Safety Report 7595725-3 (Version None)
Quarter: 2011Q3

REPORT INFORMATION
  Report Type: 
  Country: None (occurrence: None)
  Receive Date: 20110707
  Receipt Date: 20110704
  Transmission Date: 20111222
  Serious: Yes (Hospitalization)
  Sender: FDA-Public Use
  Company Number: US-BRISTOL-MYERS SQUIBB COMPANY-15875180

PATIENT
  Age: 70 Year
  Sex: Male
  Weight: 80 kg

DRUGS (1)
  1. IPILIMUMAB [Suspect]
     Indication: MALIGNANT MELANOMA
     Dosage: 90 MIN PERIOD 3 WEEKS FOR A TOTAL OF FOUR DOSES
     Route: 042
     Dates: start: 20110421, end: 20110624

REACTIONS (2)
  - DIARRHOEA [None]
  - PYREXIA [None]
